FAERS Safety Report 9516762 (Version 1)
Quarter: 2013Q1

REPORT INFORMATION
  Report Type: Spontaneous
  Country: US (occurrence: None)
  Receive Date: 20130305
  Receipt Date: 20130305
  Transmission Date: 20140127
  Serious: Yes (Hospitalization, Other)
  Sender: FDA-Public Use
  Company Number: 163-21880-12081371

PATIENT
  Age: 89 Year
  Sex: Male

DRUGS (8)
  1. REVLIMID (LENALIDOMIDE) (CAPSULES) [Suspect]
     Indication: PLASMA CELL MYELOMA
     Dosage: 25 MG, 21 IN 28 D, PO
     Dates: start: 201205, end: 201207
  2. DEXAMETHASONE(DEXAMETHASONE)(UNKNOWN) [Concomitant]
  3. HYDROCODONE/APAP(VICODIN)(UNKNOWN) [Concomitant]
  4. ALBUTEROL(SALBUTAMOL)(UNKNOWN) [Concomitant]
  5. LORAZEPAM(LORAZEPAM)(UNKNOWN) [Concomitant]
  6. METOPROLOL(METOPROLOL)(UNKNOWN) [Concomitant]
  7. FAMOTIDINE(FAMOTIDINE)(UNKNOWN) [Concomitant]
  8. ASA(ACETYLSALICYLIC ACID)(UNKNOWN) [Concomitant]

REACTIONS (2)
  - Urosepsis [None]
  - Atrial fibrillation [None]
